FAERS Safety Report 5531284-4 (Version None)
Quarter: 2007Q4

REPORT INFORMATION
  Report Type: 
  Country: None (occurrence: None)
  Receive Date: 20071123
  Receipt Date: 20071112
  Transmission Date: 20080405
  Serious: No
  Sender: FDA-Public Use
  Company Number: WSDF_00691

PATIENT
  Age: 74 Year
  Sex: Male

DRUGS (3)
  1. WINRHO SDF [Suspect]
     Indication: IDIOPATHIC THROMBOCYTOPENIC PURPURA
     Dates: start: 20071012, end: 20071012
  2. WINRHO SDF [Suspect]
     Indication: IDIOPATHIC THROMBOCYTOPENIC PURPURA
     Dates: start: 20071012, end: 20071012
  3. WINRHO SDF [Suspect]
     Indication: IDIOPATHIC THROMBOCYTOPENIC PURPURA
     Dates: start: 20071012, end: 20071012

REACTIONS (9)
  - BACTERIAL INFECTION [None]
  - BLOOD BILIRUBIN ABNORMAL [None]
  - BLOOD DISORDER [None]
  - BLOOD LACTATE DEHYDROGENASE ABNORMAL [None]
  - CHILLS [None]
  - HAEMOLYSIS [None]
  - HYPERTENSION [None]
  - IMMUNE SYSTEM DISORDER [None]
  - OXYGEN SATURATION DECREASED [None]
